FAERS Safety Report 10509389 (Version 1)
Quarter: 2014Q4

REPORT INFORMATION
  Report Type: Report from Study
  Country: US (occurrence: US)
  Receive Date: 20141009
  Receipt Date: 20141009
  Transmission Date: 20150528
  Serious: Yes (Death, Hospitalization, Other)
  Sender: FDA-Public Use
  Company Number: US-EXELIXIS-XL18414004823

PATIENT
  Age: 66 Year

DRUGS (1)
  1. XL184 [Suspect]
     Active Substance: CABOZANTINIB
     Indication: MALIGNANT MELANOMA
     Dosage: 60 MG, QD
     Route: 048
     Dates: start: 20140613, end: 20140730

REACTIONS (9)
  - Blood creatinine increased [Unknown]
  - Blood bilirubin increased [Unknown]
  - Embolism [Unknown]
  - Blood alkaline phosphatase increased [Unknown]
  - Hypoalbuminaemia [Unknown]
  - Chronic kidney disease [Unknown]
  - Alanine aminotransferase increased [Unknown]
  - Aspartate aminotransferase increased [Unknown]
  - Death [Fatal]

NARRATIVE: CASE EVENT DATE: 20140728
